FAERS Safety Report 9032624 (Version 3)
Quarter: 2014Q1

REPORT INFORMATION
  Report Type: Report from Study
  Country: BD (occurrence: BD)
  Receive Date: 20130122
  Receipt Date: 20140306
  Transmission Date: 20141002
  Serious: Yes (Death, Hospitalization, Other)
  Sender: FDA-Public Use
  Company Number: PHHY2013BD005367

PATIENT
  Age: 80 Year
  Sex: Female

DRUGS (1)
  1. EXELON PATCH [Suspect]
     Indication: DEMENTIA
     Dosage: 10CM (9.5 MG/24HOURS) DAILY
     Route: 062
     Dates: start: 201012, end: 201204

REACTIONS (7)
  - Renal failure [Fatal]
  - Urinary tract infection [Fatal]
  - Sepsis [Fatal]
  - Diarrhoea [Unknown]
  - Cerebral ventricle dilatation [Unknown]
  - Intracranial pressure increased [Unknown]
  - Concomitant disease progression [Unknown]
